FAERS Safety Report 7182067-3 (Version None)
Quarter: 2010Q4

REPORT INFORMATION
  Report Type: 
  Country: None (occurrence: None)
  Receive Date: 20101221
  Receipt Date: 20100506
  Transmission Date: 20110411
  Serious: No
  Sender: FDA-Public Use
  Company Number: US-AMGEN-KDL410716

PATIENT

DRUGS (5)
  1. ENBREL [Suspect]
     Indication: PRODUCT USED FOR UNKNOWN INDICATION
     Dosage: 50 MG, QWK
     Route: 058
  2. ALISKIREN [Concomitant]
     Dosage: 150 MG, UNK
  3. METFORMIN HCL [Concomitant]
     Dosage: 500 MG, UNK
  4. ACETYLSALICYLIC ACID [Concomitant]
     Dosage: 325 MG, UNK
  5. OLMESARTAN MEDOXOMIL [Concomitant]
     Dosage: 5 MG, UNK

REACTIONS (2)
  - INJECTION SITE PRURITUS [None]
  - INJECTION SITE RASH [None]
